FAERS Safety Report 9096769 (Version 1)
Quarter: 2013Q1

REPORT INFORMATION
  Report Type: Spontaneous
  Country: CA (occurrence: CA)
  Receive Date: 20130211
  Receipt Date: 20130211
  Transmission Date: 20140127
  Serious: Yes (Other)
  Sender: FDA-Public Use
  Company Number: CA-ELI_LILLY_AND_COMPANY-CA201302000488

PATIENT
  Sex: Male

DRUGS (2)
  1. CYMBALTA [Suspect]
  2. PANTOLOC                           /01263204/ [Concomitant]

REACTIONS (7)
  - Colon neoplasm [Not Recovered/Not Resolved]
  - Back disorder [Not Recovered/Not Resolved]
  - Bone density abnormal [Not Recovered/Not Resolved]
  - Erectile dysfunction [Not Recovered/Not Resolved]
  - Fall [Not Recovered/Not Resolved]
  - Multiple fractures [Not Recovered/Not Resolved]
  - Urinary incontinence [Not Recovered/Not Resolved]
